FAERS Safety Report 9200935 (Version 1)
Quarter: 2013Q2

REPORT INFORMATION
  Report Type: Report from Study
  Country: CA (occurrence: CA)
  Receive Date: 20130401
  Receipt Date: 20130401
  Transmission Date: 20140414
  Serious: Yes (Hospitalization)
  Sender: FDA-Public Use
  Company Number: CA-JNJFOC-20130313719

PATIENT
  Age: 53 Year
  Sex: Male
  Weight: 92.99 kg

DRUGS (1)
  1. REMICADE [Suspect]
     Indication: ANKYLOSING SPONDYLITIS
     Route: 042

REACTIONS (3)
  - Cholelithiasis [Recovered/Resolved]
  - Pneumonia [Recovered/Resolved]
  - Ankylosing spondylitis [Unknown]
